FAERS Safety Report 4446878-7 (Version None)
Quarter: 2004Q3

REPORT INFORMATION
  Report Type: 
  Country: None (occurrence: None)
  Receive Date: 20040908
  Receipt Date: 20040826
  Transmission Date: 20050211
  Serious: Yes (Other)
  Sender: FDA-Public Use
  Company Number: 2004060768

PATIENT
  Age: 67 Year
  Sex: Male

DRUGS (6)
  1. LIPITOR [Suspect]
     Indication: ILL-DEFINED DISORDER
     Dosage: 90 MG (1 IN 1 D),
  2. ASASANTIN (ACETYLSALICYLIC ACID, DIPYRIDAMOLE) [Concomitant]
  3. DILTIAZEM [Concomitant]
  4. IRON (IRON) [Concomitant]
  5. TIMOLOL MALEATE [Concomitant]
  6. LATANOPROST [Concomitant]

REACTIONS (1)
  - AORTIC ANEURYSM [None]
